FAERS Safety Report 23271416 (Version 2)
Quarter: 2024Q1

REPORT INFORMATION
  Report Type: Spontaneous
  Country: NL (occurrence: NL)
  Receive Date: 20231207
  Receipt Date: 20240116
  Transmission Date: 20240410
  Serious: Yes (Hospitalization)
  Sender: FDA-Public Use
  Company Number: NL-BAYER-2023A174395

PATIENT
  Age: 37 Year

DRUGS (1)
  1. GADOBUTROL [Suspect]
     Active Substance: GADOBUTROL
     Indication: Magnetic resonance imaging
     Dosage: 8-10-ML
     Route: 042

REACTIONS (7)
  - Rash macular [None]
  - Urticaria [Not Recovered/Not Resolved]
  - Pruritus [None]
  - Malaise [None]
  - Discomfort [None]
  - Erythema [None]
  - Nausea [None]
